FAERS Safety Report 5189843-7 (Version None)
Quarter: 2006Q4

REPORT INFORMATION
  Report Type: 
  Country: None (occurrence: None)
  Receive Date: 20061215
  Receipt Date: 20061206
  Transmission Date: 20070319
  Serious: Yes (Other)
  Sender: FDA-Public Use
  Company Number: 2006151413

PATIENT
  Age: 56 Year
  Sex: Male

DRUGS (4)
  1. GEMFIBROZIL [Suspect]
     Indication: HYPERCHOLESTEROLAEMIA
     Dosage: 1200 MG (600 MG, 2 IN 1 D), ORAL
     Route: 048
     Dates: start: 20061001, end: 20061101
  2. ZOLPIDEM TARTRATE [Concomitant]
  3. HYPNOSEDON (FLUNITRAZEPAM) [Concomitant]
  4. DRUG, UNSPECIFIED (DRUG, UNSPECIFIED) [Concomitant]

REACTIONS (2)
  - BIPOLAR I DISORDER [None]
  - CONDITION AGGRAVATED [None]
